FAERS Safety Report 10062499 (Version 1)
Quarter: 2014Q2

REPORT INFORMATION
  Report Type: Spontaneous
  Country: IT (occurrence: IT)
  Receive Date: 20140407
  Receipt Date: 20140407
  Transmission Date: 20141212
  Serious: Yes (Hospitalization)
  Sender: FDA-Public Use
  Company Number: IT-BAYER-2014-047183

PATIENT
  Age: 80 Year
  Sex: Male

DRUGS (1)
  1. OCTEGRA [Suspect]
     Dosage: DAILY DOSE 400 MG
     Route: 048
     Dates: start: 20131023, end: 20131026

REACTIONS (3)
  - Drug hypersensitivity [Recovering/Resolving]
  - Henoch-Schonlein purpura [Recovering/Resolving]
  - Myalgia [Recovering/Resolving]
